FAERS Safety Report 11198853 (Version 1)
Quarter: 2015Q2

REPORT INFORMATION
  Report Type: Spontaneous
  Country: JP (occurrence: JP)
  Receive Date: 20150618
  Receipt Date: 20150618
  Transmission Date: 20150821
  Serious: Yes (Hospitalization)
  Sender: FDA-Public Use
  Company Number: JP-CIPLA LTD.-2015JP04835

PATIENT

DRUGS (2)
  1. LAMOTRIGINE. [Suspect]
     Active Substance: LAMOTRIGINE
     Indication: BIPOLAR DISORDER
     Route: 065
  2. SODIUM VALPROATE [Concomitant]
     Active Substance: VALPROATE SODIUM
     Indication: BIPOLAR DISORDER
     Route: 065

REACTIONS (7)
  - Histiocytosis haematophagic [Unknown]
  - Drug reaction with eosinophilia and systemic symptoms [Unknown]
  - Toxic epidermal necrolysis [Unknown]
  - Reticuloendothelial system stimulated [Unknown]
  - Oral mucosa erosion [Unknown]
  - Neutrophil count decreased [Unknown]
  - Skin erosion [Unknown]
